FAERS Safety Report 4849284-6 (Version None)
Quarter: 2005Q4

REPORT INFORMATION
  Report Type: 
  Country: None (occurrence: None)
  Receive Date: 20051207
  Receipt Date: 20051123
  Transmission Date: 20060501
  Serious: Yes (Death)
  Sender: FDA-Public Use
  Company Number: 2005S1000254

PATIENT
  Age: 70 Year
  Sex: Female

DRUGS (3)
  1. CUBICIN [Suspect]
     Indication: SKIN INFECTION
     Dosage: 6 MG/KG;Q24H;
     Dates: start: 20050621, end: 20050601
  2. CUBICIN [Suspect]
     Indication: STAPHYLOCOCCAL INFECTION
     Dosage: 6 MG/KG;Q24H;
     Dates: start: 20050621, end: 20050601
  3. VANCOMYCIN [Concomitant]

REACTIONS (5)
  - DISSEMINATED INTRAVASCULAR COAGULATION [None]
  - HEPATIC FAILURE [None]
  - INTERNATIONAL NORMALISED RATIO INCREASED [None]
  - MULTI-ORGAN FAILURE [None]
  - RENAL FAILURE [None]
